FAERS Safety Report 12147478 (Version 1)
Quarter: 2016Q1

REPORT INFORMATION
  Report Type: Spontaneous
  Country: IN (occurrence: IN)
  Receive Date: 20160304
  Receipt Date: 20160304
  Transmission Date: 20160526
  Serious: Yes (Other)
  Sender: FDA-Public Use
  Company Number: IN-GLAXOSMITHKLINE-IN2016GSK030526

PATIENT
  Age: 45 Year
  Sex: Male

DRUGS (2)
  1. BECLOMETASON [Suspect]
     Active Substance: BECLOMETHASONE DIPROPIONATE
     Indication: ASTHMA
     Dosage: 800 UG, UNK
     Route: 055
  2. FORMOTEROL [Suspect]
     Active Substance: FORMOTEROL
     Indication: ASTHMA
     Dosage: 12 UG, QD
     Route: 055

REACTIONS (8)
  - Nocardiosis [Unknown]
  - White blood cell count increased [Recovering/Resolving]
  - Lung abscess [Unknown]
  - Pyrexia [Unknown]
  - Productive cough [Recovering/Resolving]
  - Dyspnoea [Unknown]
  - Clubbing [Unknown]
  - Rales [Unknown]
